FAERS Safety Report 16806047 (Version 1)
Quarter: 2019Q3

REPORT INFORMATION
  Report Type: Spontaneous
  Country: US (occurrence: US)
  Receive Date: 20190913
  Receipt Date: 20190913
  Transmission Date: 20191005
  Serious: Yes (Hospitalization, Other)
  Sender: FDA-Public Use
  Company Number: US-ABBVIE-19K-163-2921589-00

PATIENT
  Age: 60 Year
  Sex: Male
  Weight: 122.13 kg

DRUGS (4)
  1. PROGRAF [Suspect]
     Active Substance: TACROLIMUS\TACROLIMUS ANHYDROUS
     Indication: PRODUCT USED FOR UNKNOWN INDICATION
     Route: 065
  2. SYNTHROID [Suspect]
     Active Substance: LEVOTHYROXINE SODIUM
     Indication: PRODUCT USED FOR UNKNOWN INDICATION
     Route: 048
  3. RAPAMUNE [Suspect]
     Active Substance: SIROLIMUS
     Indication: TRANSPLANT
     Route: 065
     Dates: start: 2012, end: 201807
  4. RAPAMUNE [Suspect]
     Active Substance: SIROLIMUS
     Route: 065
     Dates: start: 201908

REACTIONS (6)
  - Fluid retention [Unknown]
  - Large intestine perforation [Recovered/Resolved]
  - Renal disorder [Unknown]
  - Weight fluctuation [Unknown]
  - Liver transplant [Unknown]
  - Liver disorder [Unknown]

NARRATIVE: CASE EVENT DATE: 201807
